FAERS Safety Report 25638620 (Version 1)
Quarter: 2025Q3

REPORT INFORMATION
  Report Type: Spontaneous
  Country: CA (occurrence: CA)
  Receive Date: 20250804
  Receipt Date: 20250804
  Transmission Date: 20251020
  Serious: Yes (Hospitalization, Other)
  Sender: CSL BEHRING
  Company Number: CA-BEH-2025214810

PATIENT
  Age: 13 Year
  Sex: Female
  Weight: 40 kg

DRUGS (5)
  1. ALBUREX [Suspect]
     Active Substance: ALBUMIN HUMAN
     Indication: Kidney transplant rejection
     Route: 042
  2. GAMMAGARD LIQUID [Suspect]
     Active Substance: HUMAN IMMUNOGLOBULIN G
     Indication: Kidney transplant rejection
     Dosage: 42.5 G, QMT
     Route: 042
  3. CETIRIZINE [Concomitant]
     Active Substance: CETIRIZINE HYDROCHLORIDE
     Route: 065
  4. HYDROCORTISONE [Concomitant]
     Active Substance: HYDROCORTISONE
  5. TYLENOL [Concomitant]
     Active Substance: ACETAMINOPHEN

REACTIONS (4)
  - Respiratory distress [Recovering/Resolving]
  - Transfusion-related circulatory overload [Recovering/Resolving]
  - Oxygen saturation decreased [Recovering/Resolving]
  - Pulmonary oedema [Recovering/Resolving]
